FAERS Safety Report 12685211 (Version 1)
Quarter: 2016Q3

REPORT INFORMATION
  Report Type: Spontaneous
  Country: US (occurrence: US)
  Receive Date: 20160825
  Receipt Date: 20160825
  Transmission Date: 20161109
  Serious: No
  Sender: FDA-Public Use
  Company Number: US-DSJP-DSU-2016-107883

PATIENT
  Age: 70 Year
  Sex: Female
  Weight: 94.79 kg

DRUGS (2)
  1. UNKNOWN NAME [Concomitant]
     Indication: DIABETES MELLITUS
     Dosage: UNK, STARTED: 5-6 YEARS AGO
  2. TRIBENZOR [Suspect]
     Active Substance: AMLODIPINE BESYLATE\HYDROCHLOROTHIAZIDE\OLMESARTAN MEDOXOMIL
     Indication: HYPERTENSION
     Dosage: 40/5/12.5 MG, QD
     Route: 048
     Dates: start: 201602, end: 20160227

REACTIONS (2)
  - Muscle spasms [Recovering/Resolving]
  - Urinary incontinence [Recovered/Resolved]

NARRATIVE: CASE EVENT DATE: 201602
